FAERS Safety Report 19359654 (Version 2)
Quarter: 2021Q3

REPORT INFORMATION
  Report Type: Spontaneous
  Country: US (occurrence: US)
  Receive Date: 20210601
  Receipt Date: 20210930
  Transmission Date: 20211014
  Serious: No
  Sender: FDA-Public Use
  Company Number: US-BRISTOL-MYERS SQUIBB COMPANY-BMS-2021-052473

PATIENT
  Age: 75 Year
  Sex: Female
  Weight: 55.7 kg

DRUGS (1)
  1. ORENCIA [Suspect]
     Active Substance: ABATACEPT
     Indication: PRODUCT USED FOR UNKNOWN INDICATION
     Dosage: 125 MG (1 INJECTION) ONCE A WEEK
     Route: 058

REACTIONS (1)
  - Device defective [Unknown]

NARRATIVE: CASE EVENT DATE: 20210528
